FAERS Safety Report 11587786 (Version 5)
Quarter: 2015Q4

REPORT INFORMATION
  Report Type: Report from Study
  Country: US (occurrence: US)
  Receive Date: 20151001
  Receipt Date: 20151218
  Transmission Date: 20160304
  Serious: No
  Sender: FDA-Public Use
  Company Number: PHEH2015US019126

PATIENT
  Sex: Female
  Weight: 92.63 kg

DRUGS (2)
  1. GILENYA [Suspect]
     Active Substance: FINGOLIMOD HYDROCHLORIDE
     Indication: MULTIPLE SCLEROSIS
     Dosage: 0.5 MG, QD
     Route: 048
     Dates: start: 20150501
  2. NASONEX [Concomitant]
     Active Substance: MOMETASONE FUROATE
     Indication: PRODUCT USED FOR UNKNOWN INDICATION
     Dosage: UNK
     Route: 065

REACTIONS (8)
  - Fatigue [Unknown]
  - Headache [Unknown]
  - Red blood cell count increased [Unknown]
  - Hypertension [Not Recovered/Not Resolved]
  - Sinusitis [Recovering/Resolving]
  - Lymphocyte count decreased [Unknown]
  - Vitamin D decreased [Unknown]
  - Dyspnoea [Unknown]
